FAERS Safety Report 6411160-5 (Version None)
Quarter: 2009Q4

REPORT INFORMATION
  Report Type: 
  Country: None (occurrence: None)
  Receive Date: 20091022
  Receipt Date: 20091012
  Transmission Date: 20100525
  Serious: Yes (Life-Threatening)
  Sender: FDA-Public Use
  Company Number: AU-PFIZER INC-2009281951

PATIENT

DRUGS (2)
  1. CHAMPIX [Suspect]
     Dosage: 1 MG, 1X/DAY
     Route: 048
     Dates: start: 20090227, end: 20090321
  2. LEVLEN ED [Concomitant]

REACTIONS (6)
  - ABNORMAL DREAMS [None]
  - DEPRESSION [None]
  - DEPRESSION SUICIDAL [None]
  - NAUSEA [None]
  - SUICIDAL IDEATION [None]
  - WITHDRAWAL SYNDROME [None]
